FAERS Safety Report 9958826 (Version 1)
Quarter: 2014Q1

REPORT INFORMATION
  Report Type: Report from Study
  Country: US (occurrence: US)
  Receive Date: 20140305
  Receipt Date: 20140305
  Transmission Date: 20141002
  Serious: No
  Sender: FDA-Public Use
  Company Number: US-ABBVIE-13P-163-1102033-00

PATIENT
  Age: 67 Year
  Sex: Female

DRUGS (4)
  1. HUMIRA [Suspect]
     Indication: CROHN^S DISEASE
     Dates: start: 201303
  2. SYNTHROID [Concomitant]
     Indication: THYROID FUNCTION TEST ABNORMAL
  3. CYTAMEL [Concomitant]
     Indication: THYROID FUNCTION TEST ABNORMAL
  4. CARAFATE [Concomitant]
     Indication: ULCER

REACTIONS (3)
  - Abdominal pain lower [Recovered/Resolved]
  - Gastrointestinal infection [Recovered/Resolved]
  - Abdominal discomfort [Recovered/Resolved]
